FAERS Safety Report 25665213 (Version 1)
Quarter: 2025Q3

REPORT INFORMATION
  Report Type: Spontaneous
  Country: EU (occurrence: EU)
  Receive Date: 20250811
  Receipt Date: 20250811
  Transmission Date: 20251021
  Serious: Yes (Life-Threatening, Other)
  Sender: CHEPLAPHARM
  Company Number: None

PATIENT
  Age: 70 Year
  Sex: Male
  Weight: 80 kg

DRUGS (6)
  1. ETOPOSIDE PHOSPHATE [Suspect]
     Active Substance: ETOPOSIDE PHOSPHATE
     Indication: Small cell lung cancer
     Route: 042
     Dates: start: 20250707
  2. ETOPOSIDE PHOSPHATE [Suspect]
     Active Substance: ETOPOSIDE PHOSPHATE
     Indication: Metastases to liver
     Route: 042
     Dates: start: 20250707
  3. CARBOPLATIN [Suspect]
     Active Substance: CARBOPLATIN
     Indication: Small cell lung cancer
     Route: 042
     Dates: start: 20250707
  4. CARBOPLATIN [Suspect]
     Active Substance: CARBOPLATIN
     Indication: Metastases to liver
     Route: 042
     Dates: start: 20250707
  5. TECENTRIQ [Suspect]
     Active Substance: ATEZOLIZUMAB
     Indication: Metastases to liver
     Route: 042
     Dates: start: 20250707
  6. TECENTRIQ [Suspect]
     Active Substance: ATEZOLIZUMAB
     Indication: Small cell lung cancer
     Route: 042
     Dates: start: 20250707

REACTIONS (6)
  - Bone marrow failure [Not Recovered/Not Resolved]
  - Septic shock [Recovering/Resolving]
  - Acute kidney injury [Recovered/Resolved]
  - Clostridium difficile colitis [Unknown]
  - Neoplasm progression [Unknown]
  - Pyrexia [Not Recovered/Not Resolved]

NARRATIVE: CASE EVENT DATE: 20250713
